FAERS Safety Report 9226638 (Version 2)
Quarter: 2013Q2

REPORT INFORMATION
  Report Type: Spontaneous
  Country: US (occurrence: US)
  Receive Date: 20130412
  Receipt Date: 20130503
  Transmission Date: 20140414
  Serious: No
  Sender: FDA-Public Use
  Company Number: US-PFIZER INC-2013111864

PATIENT
  Age: 33 Year
  Sex: Female

DRUGS (2)
  1. XALKORI [Suspect]
     Indication: LUNG ADENOCARCINOMA
     Dosage: 250 MG, 2X/DAY
     Route: 048
     Dates: start: 20121226
  2. XALKORI [Suspect]
     Dosage: 250 MG, 2X/DAY
     Route: 048
     Dates: start: 20121228, end: 20130402

REACTIONS (2)
  - Disease progression [Unknown]
  - Lung adenocarcinoma [Unknown]
